FAERS Safety Report 6526291-9 (Version None)
Quarter: 2009Q4

REPORT INFORMATION
  Report Type: 
  Country: None (occurrence: None)
  Receive Date: 20091222
  Receipt Date: 20091210
  Transmission Date: 20100525
  Serious: Yes (Hospitalization)
  Sender: FDA-Public Use
  Company Number: CLOF-1000744

PATIENT
  Age: 56 Year
  Sex: Male
  Weight: 57.2 kg

DRUGS (2)
  1. CLOFARABINE  OR PLACEBO (CODE NOT BROKEN) [Suspect]
     Indication: ACUTE MYELOID LEUKAEMIA
     Dates: start: 20090910, end: 20090914
  2. CYTARABINE [Suspect]
     Indication: ACUTE MYELOID LEUKAEMIA
     Dosage: 1560 MG, QDX5, INTRAVENOUS
     Route: 042
     Dates: start: 20090911, end: 20090915

REACTIONS (9)
  - ALVEOLAR PROTEINOSIS [None]
  - DEVICE RELATED INFECTION [None]
  - FUNGAL INFECTION [None]
  - GENERAL PHYSICAL HEALTH DETERIORATION [None]
  - HISTIOCYTOSIS HAEMATOPHAGIC [None]
  - PNEUMONIA [None]
  - STOMATOCOCCAL INFECTION [None]
  - STREPTOCOCCAL SEPSIS [None]
  - TREATMENT FAILURE [None]
